FAERS Safety Report 15516396 (Version 1)
Quarter: 2018Q4

REPORT INFORMATION
  Report Type: Spontaneous
  Country: CH (occurrence: CH)
  Receive Date: 20181017
  Receipt Date: 20181017
  Transmission Date: 20190205
  Serious: Yes (Other)
  Sender: FDA-Public Use
  Company Number: CH-ROCHE-1821336

PATIENT
  Sex: Male

DRUGS (3)
  1. BENDAMUSTINE [Concomitant]
     Active Substance: BENDAMUSTINE
     Indication: CHRONIC LYMPHOCYTIC LEUKAEMIA
     Route: 065
     Dates: start: 2016
  2. GAZYVARO [Suspect]
     Active Substance: OBINUTUZUMAB
     Indication: CHRONIC LYMPHOCYTIC LEUKAEMIA
     Route: 042
     Dates: start: 2016
  3. GAZYVARO [Suspect]
     Active Substance: OBINUTUZUMAB
     Dosage: FIRST RECEIVED 8 THERAPY CYCLES OF OBINUTUZUMAB AND THEN 12 CYCLES OF OBINUTUZUMAB MONOTHERAPY IN DO
     Route: 042
     Dates: start: 20170926

REACTIONS (3)
  - Off label use [Unknown]
  - Intentional product use issue [Unknown]
  - Chronic lymphocytic leukaemia recurrent [Unknown]
